FAERS Safety Report 21162057 (Version 1)
Quarter: 2022Q3

REPORT INFORMATION
  Report Type: Spontaneous
  Country: CN (occurrence: CN)
  Receive Date: 20220802
  Receipt Date: 20220802
  Transmission Date: 20221027
  Serious: Yes (Other)
  Sender: FDA-Public Use
  Company Number: CN-TAKEDA-2022TUS051061

PATIENT

DRUGS (4)
  1. ANAGRELIDE [Suspect]
     Active Substance: ANAGRELIDE
     Indication: Essential thrombocythaemia
     Dosage: 0.5 MILLIGRAM, BID
     Route: 048
     Dates: start: 20210105, end: 20210331
  2. ANAGRELIDE [Suspect]
     Active Substance: ANAGRELIDE
     Dosage: UNK
     Route: 065
     Dates: start: 20160906, end: 20210708
  3. ANAGRELIDE [Suspect]
     Active Substance: ANAGRELIDE
     Dosage: 1 MILLIGRAM, BID
     Route: 048
     Dates: start: 20210401
  4. COBAMAMIDE [Concomitant]
     Active Substance: COBAMAMIDE
     Dosage: UNK
     Route: 065
     Dates: start: 20210530

REACTIONS (1)
  - Purpura [Not Recovered/Not Resolved]

NARRATIVE: CASE EVENT DATE: 20210629
